FAERS Safety Report 5822763-0 (Version None)
Quarter: 2008Q3

REPORT INFORMATION
  Report Type: 
  Country: None (occurrence: None)
  Receive Date: 20080725
  Receipt Date: 20071017
  Transmission Date: 20090109
  Serious: No
  Sender: FDA-Public Use
  Company Number: US-AMGEN-KDL248757

PATIENT
  Sex: Male

DRUGS (2)
  1. PROCRIT [Suspect]
     Indication: RENAL FAILURE CHRONIC
     Dates: start: 20050101
  2. UNSPECIFIED MEDICATION [Concomitant]

REACTIONS (5)
  - ASTHENIA [None]
  - DIARRHOEA [None]
  - FALL [None]
  - HAEMOGLOBIN DECREASED [None]
  - MELAENA [None]
